FAERS Safety Report 12566874 (Version 2)
Quarter: 2016Q3

REPORT INFORMATION
  Report Type: Spontaneous
  Country: JP (occurrence: JP)
  Receive Date: 20160718
  Receipt Date: 20160831
  Transmission Date: 20161109
  Serious: Yes (Other)
  Sender: FDA-Public Use
  Company Number: JP-INDIVIOR LIMITED-INDV-091515-2016

PATIENT
  Age: 35 Year
  Sex: Female

DRUGS (5)
  1. LEPETAN [Suspect]
     Active Substance: BUPRENORPHINE HYDROCHLORIDE
     Indication: PRODUCT USED FOR UNKNOWN INDICATION
     Dosage: UNK
     Route: 065
     Dates: start: 20141002
  2. LEPETAN [Suspect]
     Active Substance: BUPRENORPHINE HYDROCHLORIDE
     Dosage: 0.4 MG, BID
     Route: 054
  3. PENTAZOCINE [Suspect]
     Active Substance: PENTAZOCINE
     Indication: PAIN
     Dosage: UNK,THREE TIMES WEEKLY
     Route: 030
  4. PENTAZOCINE [Suspect]
     Active Substance: PENTAZOCINE
     Dosage: DOSE DECREASED
     Route: 030
  5. LOXOPROFEN [Concomitant]
     Active Substance: LOXOPROFEN
     Indication: PRODUCT USED FOR UNKNOWN INDICATION
     Dosage: UNK
     Route: 065

REACTIONS (4)
  - Drug dependence [Unknown]
  - Toxicity to various agents [Unknown]
  - Mental disorder [Unknown]
  - Hyperventilation [Unknown]

NARRATIVE: CASE EVENT DATE: 201412
